FAERS Safety Report 21504206 (Version 1)
Quarter: 2022Q4

REPORT INFORMATION
  Report Type: Report from Study
  Country: IN (occurrence: IN)
  Receive Date: 20221025
  Receipt Date: 20221025
  Transmission Date: 20230112
  Serious: Yes (Other)
  Sender: FDA-Public Use
  Company Number: IN-BRISTOL-MYERS SQUIBB COMPANY-2022-104055

PATIENT
  Age: 36 Year
  Sex: Female

DRUGS (1)
  1. NIVOLUMAB [Suspect]
     Active Substance: NIVOLUMAB
     Indication: Hodgkin^s disease
     Dosage: 2 WEEKLY
     Route: 042
     Dates: start: 20220422

REACTIONS (6)
  - Tissue injury [Unknown]
  - Osteomyelitis [Unknown]
  - Fungal infection [Unknown]
  - Skin ulcer [Unknown]
  - Pain [Unknown]
  - Peripheral swelling [Unknown]
